FAERS Safety Report 25156464 (Version 3)
Quarter: 2025Q2

REPORT INFORMATION
  Report Type: Spontaneous
  Country: US (occurrence: US)
  Receive Date: 20250403
  Receipt Date: 20250415
  Transmission Date: 20250716
  Serious: No
  Sender: SANOFI AVENTIS
  Company Number: US-SA-2025SA094725

PATIENT
  Age: 81 Year
  Sex: Female

DRUGS (30)
  1. KEVZARA [Suspect]
     Active Substance: SARILUMAB
     Indication: Polymyalgia rheumatica
     Dosage: 200 MG, QOW
     Route: 058
  2. BENZONATATE [Concomitant]
     Active Substance: BENZONATATE
  3. FLONASE [Concomitant]
     Active Substance: FLUTICASONE PROPIONATE
  4. HYDROCHLOROTHIAZIDE [Concomitant]
     Active Substance: HYDROCHLOROTHIAZIDE
  5. MONTELUKAST [Concomitant]
     Active Substance: MONTELUKAST
  6. VITAMIN B12 [Concomitant]
     Active Substance: CYANOCOBALAMIN
  7. ALPRAZOLAM [Concomitant]
     Active Substance: ALPRAZOLAM
  8. CITALOPRAM [Concomitant]
     Active Substance: CITALOPRAM
  9. DILTIAZEM [Concomitant]
     Active Substance: DILTIAZEM
  10. ELIQUIS [Concomitant]
     Active Substance: APIXABAN
  11. FOLIC ACID [Concomitant]
     Active Substance: FOLIC ACID
  12. LEVOTHYROXINE [Concomitant]
     Active Substance: LEVOTHYROXINE
  13. METHOTREXATE [Concomitant]
     Active Substance: METHOTREXATE
  14. PRAVASTATIN [Concomitant]
     Active Substance: PRAVASTATIN
  15. SPIRONOLACTONE [Concomitant]
     Active Substance: SPIRONOLACTONE
  16. PRAVASTATIN [Concomitant]
     Active Substance: PRAVASTATIN
  17. ELIQUIS [Concomitant]
     Active Substance: APIXABAN
  18. BENZONATATE [Concomitant]
     Active Substance: BENZONATATE
  19. DILTIAZEM HYDROCHLORIDE [Concomitant]
     Active Substance: DILTIAZEM HYDROCHLORIDE
  20. FLONASE ALLERGY RELIEF [Concomitant]
     Active Substance: FLUTICASONE PROPIONATE
  21. FOLIC ACID [Concomitant]
     Active Substance: FOLIC ACID
  22. METHOTREXATE [Concomitant]
     Active Substance: METHOTREXATE
  23. RESTASIS [Concomitant]
     Active Substance: CYCLOSPORINE
  24. CITALOPRAM [Concomitant]
     Active Substance: CITALOPRAM
  25. VITAMIN B12 [Concomitant]
     Active Substance: CYANOCOBALAMIN
  26. SPIRONOLACTONE [Concomitant]
     Active Substance: SPIRONOLACTONE
  27. LEVOTHYROXINE [Concomitant]
     Active Substance: LEVOTHYROXINE
  28. HYDROCHLOROTHIAZIDE [Concomitant]
     Active Substance: HYDROCHLOROTHIAZIDE
  29. ALPRAZOLAM [Concomitant]
     Active Substance: ALPRAZOLAM
  30. MONTELUKAST [Concomitant]
     Active Substance: MONTELUKAST

REACTIONS (5)
  - Pruritus [Not Recovered/Not Resolved]
  - Erythema [Not Recovered/Not Resolved]
  - Arthralgia [Not Recovered/Not Resolved]
  - Condition aggravated [Not Recovered/Not Resolved]
  - Infection [Not Recovered/Not Resolved]
